FAERS Safety Report 4318306-3 (Version None)
Quarter: 2004Q1

REPORT INFORMATION
  Report Type: 
  Country: None (occurrence: None)
  Receive Date: 20040315
  Receipt Date: 20040301
  Transmission Date: 20041129
  Serious: Yes (Hospitalization)
  Sender: FDA-Public Use
  Company Number: 204987

PATIENT
  Sex: Male

DRUGS (1)
  1. XOLAIR [Suspect]
     Dosage: SUBCUTANEOUS
     Route: 058

REACTIONS (2)
  - ASTHMA [None]
  - CONDITION AGGRAVATED [None]
